FAERS Safety Report 23139933 (Version 1)
Quarter: 2023Q4

REPORT INFORMATION
  Report Type: Report from Study
  Country: US (occurrence: US)
  Receive Date: 20231102
  Receipt Date: 20231102
  Transmission Date: 20240109
  Serious: Yes (Other)
  Sender: FDA-Public Use
  Company Number: US-JNJFOC-20231068255

PATIENT
  Age: 74 Year
  Sex: Female
  Weight: 80 kg

DRUGS (6)
  1. TECLISTAMAB [Suspect]
     Active Substance: TECLISTAMAB
     Indication: Plasma cell myeloma
     Dosage: CYCLE 01 DAY 2
     Route: 058
     Dates: start: 20211029
  2. TECLISTAMAB [Suspect]
     Active Substance: TECLISTAMAB
     Dosage: CYCLE 01 DAY 5
     Route: 058
     Dates: start: 20211101
  3. TECLISTAMAB [Suspect]
     Active Substance: TECLISTAMAB
     Dosage: CYCLE 01 DAY 7
     Route: 058
     Dates: start: 20211103
  4. TECLISTAMAB [Suspect]
     Active Substance: TECLISTAMAB
     Dosage: CYCLE 01 DAY 16
     Route: 058
     Dates: start: 20211112
  5. TECLISTAMAB [Suspect]
     Active Substance: TECLISTAMAB
     Dosage: CYCLE 13
     Route: 058
     Dates: end: 20230802
  6. DARATUMUMAB [Suspect]
     Active Substance: DARATUMUMAB
     Indication: Plasma cell myeloma
     Route: 058
     Dates: start: 20211028, end: 20221121

REACTIONS (1)
  - Large granular lymphocytosis [Not Recovered/Not Resolved]

NARRATIVE: CASE EVENT DATE: 20231025
